FAERS Safety Report 15900713 (Version 3)
Quarter: 2019Q1

REPORT INFORMATION
  Report Type: Spontaneous
  Country: JP (occurrence: JP)
  Receive Date: 20190201
  Receipt Date: 20190314
  Transmission Date: 20190417
  Serious: Yes (Hospitalization, Other)
  Sender: FDA-Public Use
  Company Number: JP-ASTRAZENECA-2018SF72027

PATIENT
  Age: 67 Year
  Sex: Male

DRUGS (12)
  1. OXYGEN. [Concomitant]
     Active Substance: OXYGEN
  2. ZOLPIDEM TARTRATE. [Concomitant]
     Active Substance: ZOLPIDEM TARTRATE
  3. RIVAROXABAN [Concomitant]
     Active Substance: RIVAROXABAN
  4. VASOLAN [Concomitant]
     Active Substance: VERAPAMIL HYDROCHLORIDE
  5. ATORVASTATIN [Concomitant]
     Active Substance: ATORVASTATIN
  6. ALLOID G [Concomitant]
     Active Substance: SODIUM ALGINATE
  7. TRAMCET [Concomitant]
     Active Substance: ACETAMINOPHEN\TRAMADOL
  8. IMFINZI [Suspect]
     Active Substance: DURVALUMAB
     Indication: NON-SMALL CELL LUNG CANCER
     Route: 042
     Dates: start: 20181212, end: 201812
  9. XARELTO [Concomitant]
     Active Substance: RIVAROXABAN
  10. NEXIUM [Concomitant]
     Active Substance: ESOMEPRAZOLE MAGNESIUM
     Route: 048
  11. ANTIBIOTICS [Concomitant]
     Active Substance: UNSPECIFIED INGREDIENT
  12. MAINTATE [Concomitant]
     Active Substance: BISOPROLOL FUMARATE

REACTIONS (3)
  - Radiation pneumonitis [Recovering/Resolving]
  - Malignant neoplasm progression [Unknown]
  - C-reactive protein increased [Unknown]

NARRATIVE: CASE EVENT DATE: 20181213
